FAERS Safety Report 22117801 (Version 1)
Quarter: 2023Q1

REPORT INFORMATION
  Report Type: Spontaneous
  Country: JP (occurrence: JP)
  Receive Date: 20230321
  Receipt Date: 20230321
  Transmission Date: 20230418
  Serious: Yes (Death, Life-Threatening)
  Sender: FDA-Public Use
  Company Number: JP-KYOWAKIRIN-2023AKK003370

PATIENT
  Age: 82 Year
  Sex: Male

DRUGS (2)
  1. PEGFILGRASTIM [Suspect]
     Active Substance: PEGFILGRASTIM
     Indication: Colony stimulating factor therapy
     Dosage: 3.6 MG, SINGLE
     Route: 058
     Dates: start: 20230301, end: 20230301
  2. CEFTRIAXONE [Concomitant]
     Active Substance: CEFTRIAXONE
     Indication: Product used for unknown indication
     Dosage: 2 G
     Route: 065
     Dates: start: 20230303, end: 20230307

REACTIONS (1)
  - Neutrophil count decreased [Fatal]

NARRATIVE: CASE EVENT DATE: 20230306
